FAERS Safety Report 10606091 (Version 1)
Quarter: 2014Q4

REPORT INFORMATION
  Report Type: Spontaneous
  Country: US (occurrence: None)
  Receive Date: 20141121
  Receipt Date: 20141121
  Transmission Date: 20150529
  Serious: Yes (Other)
  Sender: FDA-Public Use
  Company Number: US-H14001-14-01635

PATIENT
  Age: 50 Year
  Sex: Female

DRUGS (1)
  1. PREDNISONE. [Suspect]
     Active Substance: PREDNISONE
     Indication: FOCAL SEGMENTAL GLOMERULOSCLEROSIS
     Dosage: 3 CYCLES OF THERAPY

REACTIONS (15)
  - Impaired driving ability [None]
  - Euphoric mood [None]
  - Inappropriate affect [None]
  - Amnesia [None]
  - Treatment failure [None]
  - Depression [None]
  - Insomnia [None]
  - Proteinuria [None]
  - Thinking abnormal [None]
  - Disease recurrence [None]
  - Impulse-control disorder [None]
  - Memory impairment [None]
  - Anxiety [None]
  - Psychomotor hyperactivity [None]
  - Cognitive disorder [None]
